FAERS Safety Report 13951526 (Version 1)
Quarter: 2017Q3

REPORT INFORMATION
  Report Type: Spontaneous
  Country: US (occurrence: US)
  Receive Date: 20170908
  Receipt Date: 20170908
  Transmission Date: 20171128
  Serious: No
  Sender: FDA-Public Use
  Company Number: US-JAZZ-2017-US-009528

PATIENT
  Sex: Male

DRUGS (1)
  1. XYREM [Suspect]
     Active Substance: SODIUM OXYBATE
     Indication: NARCOLEPSY
     Dosage: 3.25G, BID
     Route: 048
     Dates: start: 20170718

REACTIONS (5)
  - Dry mouth [Unknown]
  - Headache [Unknown]
  - Anxiety [Unknown]
  - Feeling abnormal [Unknown]
  - Heart rate increased [Unknown]
